FAERS Safety Report 25255904 (Version 1)
Quarter: 2025Q2

REPORT INFORMATION
  Report Type: Spontaneous
  Country: IT (occurrence: IT)
  Receive Date: 20250430
  Receipt Date: 20250430
  Transmission Date: 20250716
  Serious: Yes (Other)
  Sender: PFIZER
  Company Number: IT-PFIZER INC-PV202500051065

PATIENT
  Age: 64 Year
  Sex: Female

DRUGS (5)
  1. BORTEZOMIB [Suspect]
     Active Substance: BORTEZOMIB
     Indication: Thrombotic thrombocytopenic purpura
  2. BORTEZOMIB [Suspect]
     Active Substance: BORTEZOMIB
  3. RITUXIMAB [Concomitant]
     Active Substance: RITUXIMAB
     Indication: Thrombotic thrombocytopenic purpura
     Dosage: UNK, WEEKLY, ONCE A WEEK FOR 4 WEEKS
  4. CAPLACIZUMAB [Concomitant]
     Active Substance: CAPLACIZUMAB
     Indication: Thrombotic thrombocytopenic purpura
  5. CYCLOPHOSPHAMIDE [Concomitant]
     Active Substance: CYCLOPHOSPHAMIDE
     Indication: Thrombotic thrombocytopenic purpura

REACTIONS (1)
  - Neurotoxicity [Unknown]
